FAERS Safety Report 8400154-6 (Version None)
Quarter: 2012Q2

REPORT INFORMATION
  Report Type: 
  Country: None (occurrence: None)
  Receive Date: 20120531
  Receipt Date: 20120525
  Transmission Date: 20120825
  Serious: Yes (Hospitalization)
  Sender: FDA-Public Use
  Company Number: US-GILEAD-2012-0052414

PATIENT
  Sex: Male

DRUGS (4)
  1. LETAIRIS [Suspect]
     Indication: PULMONARY HYPERTENSION
     Dosage: 5 MG, UNK
     Route: 048
     Dates: start: 20120126, end: 20120525
  2. WARFARIN SODIUM [Suspect]
  3. LETAIRIS [Suspect]
     Indication: EMBOLISM
  4. REVATIO [Concomitant]

REACTIONS (7)
  - GASTROINTESTINAL HAEMORRHAGE [None]
  - EPISTAXIS [None]
  - OEDEMA PERIPHERAL [None]
  - HAEMORRHAGE [None]
  - ANAEMIA [None]
  - ERYTHEMA [None]
  - OEDEMA [None]
